FAERS Safety Report 16573791 (Version 1)
Quarter: 2019Q3

REPORT INFORMATION
  Report Type: Spontaneous
  Country: DE (occurrence: DE)
  Receive Date: 20190715
  Receipt Date: 20190715
  Transmission Date: 20191004
  Serious: Yes (Other)
  Sender: FDA-Public Use
  Company Number: DE-TEVA-2019-DE-1076612

PATIENT
  Age: 93 Year
  Sex: Male

DRUGS (8)
  1. DECODERM CREME [Concomitant]
     Dosage: 1-0-0, SALBE
     Route: 003
  2. ASPIRIN. [Concomitant]
     Active Substance: ASPIRIN
     Dosage: 100 MG, 1-0-0, TABLETTEN
     Route: 048
  3. HYDROCHLOROTHIAZIDE. [Suspect]
     Active Substance: HYDROCHLOROTHIAZIDE
     Dosage: 12.5 MG, 1-0-0, TABLETTEN
     Route: 048
  4. AMLODIPINE [Suspect]
     Active Substance: AMLODIPINE BESYLATE
     Dosage: 5 MG, 1-0-0, TABLETTEN
     Route: 048
  5. MELPERONE [Suspect]
     Active Substance: MELPERONE
     Dosage: 5 ML, B.W., JUICE
     Route: 048
  6. LISINOPRIL. [Suspect]
     Active Substance: LISINOPRIL
     Dosage: 20 MG, 1-0-0, TABLETTEN
     Route: 048
  7. NOVALGIN [Concomitant]
     Dosage: 500 MG, B.B., TABLETTEN
     Route: 048
  8. TRIAMCINOLON ABZ 0,1% CREME [Concomitant]
     Dosage: 1-0-0, OINTMENT
     Route: 003

REACTIONS (4)
  - Fall [Recovered/Resolved]
  - Brain contusion [Recovered/Resolved]
  - Syncope [Recovered/Resolved]
  - Dizziness [Recovered/Resolved]
